FAERS Safety Report 6097101-1 (Version None)
Quarter: 2009Q1

REPORT INFORMATION
  Report Type: 
  Country: None (occurrence: None)
  Receive Date: 20090227
  Receipt Date: 20090220
  Transmission Date: 20090719
  Serious: Yes (Death)
  Sender: FDA-Public Use
  Company Number: US-GILEAD-2009-0020441

PATIENT
  Sex: Female

DRUGS (16)
  1. LETAIRIS [Suspect]
     Indication: PULMONARY ARTERIAL HYPERTENSION
     Route: 048
     Dates: start: 20081201, end: 20090101
  2. LETAIRIS [Suspect]
     Route: 048
     Dates: start: 20080401, end: 20081201
  3. LETAIRIS [Suspect]
     Route: 048
     Dates: start: 20070801, end: 20080401
  4. REVATIO [Concomitant]
  5. WARFARIN [Concomitant]
  6. FUROSEMIDE [Concomitant]
  7. QVAR INHALER [Concomitant]
  8. SPIRONOLACTONE [Concomitant]
  9. OMEPRAZOLE [Concomitant]
  10. ALLEGRA [Concomitant]
  11. TYLENOL W/ CODEINE NO. 3 [Concomitant]
  12. AMBIEN [Concomitant]
  13. BIOTIN [Concomitant]
  14. M.V.I. [Concomitant]
  15. CALCIUM [Concomitant]
  16. FOSAMAX PLUS D [Concomitant]

REACTIONS (5)
  - COUGH [None]
  - DEATH [None]
  - DYSPNOEA [None]
  - PRURITUS [None]
  - RASH [None]
